FAERS Safety Report 7883342-7 (Version None)
Quarter: 2011Q4

REPORT INFORMATION
  Report Type: 
  Country: None (occurrence: None)
  Receive Date: 20111102
  Receipt Date: 20111025
  Transmission Date: 20120403
  Serious: Yes (Hospitalization, Other)
  Sender: FDA-Public Use
  Company Number: JP-CEPHALON-2011003996

PATIENT
  Sex: Male

DRUGS (6)
  1. BENDAMUSTINE HCL [Suspect]
     Indication: MANTLE CELL LYMPHOMA
     Route: 042
     Dates: start: 20110419
  2. RITUXIMAB [Concomitant]
     Indication: B-LYMPHOCYTE COUNT
     Dates: start: 20110419, end: 20110419
  3. SULFAMETHOXAZOLE AND TRIMETHOPRIM [Concomitant]
     Dates: start: 20081208
  4. ANTIBIOTICS-RESISTANT LACTIC ACID BACTERIAE [Concomitant]
     Dates: start: 20081208
  5. URSODIOL [Concomitant]
     Dates: start: 20081208
  6. LANSOPRAZOLE [Concomitant]
     Dates: start: 20081208

REACTIONS (1)
  - CYTOMEGALOVIRUS TEST POSITIVE [None]
